FAERS Safety Report 14675740 (Version 1)
Quarter: 2018Q1

REPORT INFORMATION
  Report Type: Spontaneous
  Country: US (occurrence: US)
  Receive Date: 20180323
  Receipt Date: 20180323
  Transmission Date: 20180509
  Serious: No
  Sender: FDA-Public Use
  Company Number: US-REGENERON PHARMACEUTICALS, INC.-2017-13877

PATIENT

DRUGS (1)
  1. ARCALYST [Suspect]
     Active Substance: RILONACEPT
     Indication: SCHNITZLER^S SYNDROME
     Dosage: 160 MG SC QWEEK
     Route: 058
     Dates: start: 2016, end: 201611

REACTIONS (6)
  - Laboratory test abnormal [Unknown]
  - Off label use [Unknown]
  - Product supply issue [Unknown]
  - Drug dose omission [Unknown]
  - Arthralgia [Unknown]
  - General physical health deterioration [Unknown]

NARRATIVE: CASE EVENT DATE: 2016
